FAERS Safety Report 11457686 (Version 1)
Quarter: 2015Q3

REPORT INFORMATION
  Report Type: Spontaneous
  Country: MY (occurrence: MY)
  Receive Date: 20150904
  Receipt Date: 20150904
  Transmission Date: 20151125
  Serious: Yes (Death, Other)
  Sender: FDA-Public Use
  Company Number: MY-CIPLA LTD.-2015MY07083

PATIENT

DRUGS (6)
  1. IFOSFAMIDE. [Suspect]
     Active Substance: IFOSFAMIDE
     Indication: LYMPHOMA
     Route: 065
  2. IFOSFAMIDE. [Suspect]
     Active Substance: IFOSFAMIDE
     Indication: DISEASE PROGRESSION
  3. CARBOPLATIN. [Suspect]
     Active Substance: CARBOPLATIN
     Indication: LYMPHOMA
     Route: 065
  4. VINORELBINE [Suspect]
     Active Substance: VINORELBINE\VINORELBINE TARTRATE
     Indication: DISEASE PROGRESSION
     Route: 065
  5. ETOPOSIDE. [Suspect]
     Active Substance: ETOPOSIDE
     Indication: LYMPHOMA
     Route: 065
  6. GEMCITABINE [Suspect]
     Active Substance: GEMCITABINE\GEMCITABINE HYDROCHLORIDE
     Indication: DISEASE PROGRESSION
     Route: 065

REACTIONS (18)
  - Cerebral infarction [Unknown]
  - Abscess [Unknown]
  - Thrombocytopenia [Unknown]
  - Oedema [Unknown]
  - Thrombotic thrombocytopenic purpura [Unknown]
  - Altered state of consciousness [Unknown]
  - Death [Fatal]
  - Disease progression [Unknown]
  - Hepatosplenomegaly [Unknown]
  - Leukocytosis [Unknown]
  - Microangiopathic haemolytic anaemia [Unknown]
  - Lymphocytic infiltration [Unknown]
  - Acute kidney injury [Unknown]
  - Sepsis [Unknown]
  - Seizure [Unknown]
  - Multi-organ failure [Unknown]
  - Blood alkaline phosphatase increased [Unknown]
  - Blood bilirubin increased [Unknown]
